FAERS Safety Report 7241302-3 (Version None)
Quarter: 2011Q1

REPORT INFORMATION
  Report Type: 
  Country: None (occurrence: None)
  Receive Date: 20110124
  Receipt Date: 20110118
  Transmission Date: 20110831
  Serious: Yes (Other)
  Sender: FDA-Public Use
  Company Number: B0695550A

PATIENT
  Sex: Male
  Weight: 8 kg

DRUGS (1)
  1. AUGMENTIN [Suspect]
     Indication: VARICELLA
     Route: 048
     Dates: start: 20101130

REACTIONS (3)
  - VOMITING [None]
  - CHOLESTASIS [None]
  - DIARRHOEA [None]
